FAERS Safety Report 24592694 (Version 1)
Quarter: 2024Q4

REPORT INFORMATION
  Report Type: Report from Study
  Country: CA (occurrence: CA)
  Receive Date: 20241108
  Receipt Date: 20241108
  Transmission Date: 20250114
  Serious: Yes (Other)
  Sender: REGENERON
  Company Number: CA-BAYER-2024A157696

PATIENT
  Sex: Female

DRUGS (2)
  1. EYLEA [Suspect]
     Active Substance: AFLIBERCEPT
     Indication: Diabetic retinal oedema
     Dosage: 2 MG, SOLUTION FOR INJECTION, 40 MG/ML
     Dates: start: 20190723
  2. EYLEA [Suspect]
     Active Substance: AFLIBERCEPT
     Dosage: UNK,SOLUTION FOR INJECTION, 40  MG/ML
     Dates: start: 20241101

REACTIONS (2)
  - Cataract operation [Unknown]
  - Visual impairment [Unknown]

NARRATIVE: CASE EVENT DATE: 20210101
